FAERS Safety Report 7823508-5 (Version None)
Quarter: 2011Q4

REPORT INFORMATION
  Report Type: 
  Country: None (occurrence: None)
  Receive Date: 20111019
  Receipt Date: 20111014
  Transmission Date: 20120403
  Serious: Yes (Hospitalization, Other)
  Sender: FDA-Public Use
  Company Number: FR-PFIZER INC-2011245653

PATIENT
  Age: 56 Year
  Sex: Female

DRUGS (1)
  1. RELPAX [Suspect]
     Indication: HEADACHE
     Dosage: 40 MG, 1X/DAY
     Dates: start: 20050101, end: 20110901

REACTIONS (3)
  - DEEP VEIN THROMBOSIS [None]
  - CHEST DISCOMFORT [None]
  - PARAESTHESIA [None]
